FAERS Safety Report 7735576-X (Version None)
Quarter: 2011Q3

REPORT INFORMATION
  Report Type: 
  Country: None (occurrence: None)
  Receive Date: 20110907
  Receipt Date: 20110829
  Transmission Date: 20111222
  Serious: Yes (Disabling)
  Sender: FDA-Public Use
  Company Number: NO-B.I. PHARMACEUTICALS,INC./RIDGEFIELD-2011-SW-00349NO

PATIENT
  Age: 68 Year
  Sex: Male

DRUGS (4)
  1. ASPIRIN [Concomitant]
     Indication: CARDIOVASCULAR EVENT PROPHYLAXIS
     Dosage: 75 MG
     Route: 048
     Dates: start: 20080101
  2. PERSANTIN [Suspect]
     Indication: CARDIOVASCULAR EVENT PROPHYLAXIS
     Dosage: 1 ANZ
     Route: 048
     Dates: start: 20080101
  3. SIMVASTATIN [Suspect]
     Indication: CARDIOVASCULAR EVENT PROPHYLAXIS
     Dosage: 40 MG
     Route: 048
     Dates: start: 20080101, end: 20110601
  4. LOSARTAN POTASSIUM AND HYDROCHLOROTHIAZIDE [Suspect]
     Indication: HYPERTENSION
     Dosage: 1 ANZ
     Route: 048
     Dates: start: 20080101

REACTIONS (4)
  - BACK PAIN [None]
  - PERIPHERAL COLDNESS [None]
  - PARAESTHESIA [None]
  - MYALGIA [None]
